FAERS Safety Report 12973485 (Version 2)
Quarter: 2019Q1

REPORT INFORMATION
  Report Type: Spontaneous
  Country: FR (occurrence: FR)
  Receive Date: 20161124
  Receipt Date: 20190214
  Transmission Date: 20190417
  Serious: Yes (Disabling, Other)
  Sender: FDA-Public Use
  Company Number: FR-009507513-1611FRA010913

PATIENT
  Age: 89 Year
  Sex: Male

DRUGS (1)
  1. PEMBROLIZUMAB. [Suspect]
     Active Substance: PEMBROLIZUMAB
     Indication: MALIGNANT MELANOMA
     Dosage: 2 MILLIGRAM/KILOGRAM, EVERY 3 WEEKS, 12 INFUSIONS
     Route: 042

REACTIONS (2)
  - Immune-mediated adverse reaction [Recovered/Resolved]
  - Polymyalgia rheumatica [Recovered/Resolved]
